FAERS Safety Report 7202714-7 (Version None)
Quarter: 2010Q4

REPORT INFORMATION
  Report Type: 
  Country: None (occurrence: None)
  Receive Date: 20101220
  Receipt Date: 20101203
  Transmission Date: 20110411
  Serious: Yes (Hospitalization)
  Sender: FDA-Public Use
  Company Number: 003576

PATIENT
  Sex: Female

DRUGS (19)
  1. CERTOLIZUMAB PEGOL (CERTOLIZUMAB PEGOL) [Suspect]
     Indication: RHEUMATOID ARTHRITIS
     Dosage: SUBCUTANEOUS
     Route: 058
     Dates: start: 20100722, end: 20100101
  2. CERTOLIZUMAB PEGOL (CERTOLIZUMAB PEGOL) [Suspect]
     Indication: RHEUMATOID ARTHRITIS
     Dosage: SUBCUTANEOUS
     Route: 058
     Dates: start: 20091001, end: 20100527
  3. METHOTREXATE [Concomitant]
  4. LOXOPROFEN SODIUM [Concomitant]
  5. CANDESARTAN CILEXETIL [Concomitant]
  6. DICLOFENAC SODIUM [Concomitant]
  7. RABEPRAZOLE SODIUM [Concomitant]
  8. REBAMIPIDE [Concomitant]
  9. MOSAPRIDE [Concomitant]
  10. SCOPOLAMINE [Concomitant]
  11. TIQUIZIUM BROMIDE [Concomitant]
  12. FOLIC ACID [Concomitant]
  13. CELECOXIB [Concomitant]
  14. PREDNISOLONE [Concomitant]
  15. KETOPROFEN [Concomitant]
  16. CANDESARTAN CILEXETIL [Concomitant]
  17. ISONIAZID [Concomitant]
  18. VALPROATE SODIUM [Concomitant]
  19. BETAMETHASONE [Concomitant]

REACTIONS (11)
  - ACCIDENT [None]
  - ARTHRALGIA [None]
  - BACK PAIN [None]
  - BRAIN TUMOUR OPERATION [None]
  - CONSTIPATION [None]
  - CONTUSION [None]
  - FALL [None]
  - GAIT DISTURBANCE [None]
  - SWELLING FACE [None]
  - TUMOUR NECROSIS [None]
  - WOUND COMPLICATION [None]
